FAERS Safety Report 21768892 (Version 1)
Quarter: 2022Q4

REPORT INFORMATION
  Report Type: Spontaneous
  Country: US (occurrence: US)
  Receive Date: 20221222
  Receipt Date: 20221222
  Transmission Date: 20230113
  Serious: No
  Sender: FDA-Public Use
  Company Number: US-ABBVIE-4199121

PATIENT
  Sex: Female

DRUGS (6)
  1. RINVOQ [Suspect]
     Active Substance: UPADACITINIB
     Indication: Rheumatoid arthritis
     Dosage: 15MG ER
     Route: 048
     Dates: start: 20221017
  2. VITAMIN C TAB 1000MG, [Concomitant]
     Indication: Product used for unknown indication
  3. ATORVASTATIN [Concomitant]
     Active Substance: ATORVASTATIN
     Indication: Product used for unknown indication
  4. VITAMIN B 12 TAB 500MCG [Concomitant]
     Indication: Product used for unknown indication
     Dosage: 500MCG
  5. TRIAMTERENE- CAP 37.5-25M [Concomitant]
     Indication: Product used for unknown indication
     Dosage: 37.5-25M
  6. MELATONIN SUB 5MG [Concomitant]
     Indication: Product used for unknown indication

REACTIONS (1)
  - Adverse drug reaction [Recovered/Resolved]

NARRATIVE: CASE EVENT DATE: 20220101
